FAERS Safety Report 10195436 (Version 1)
Quarter: 2014Q2

REPORT INFORMATION
  Report Type: Spontaneous
  Country: DE (occurrence: DE)
  Receive Date: 20140526
  Receipt Date: 20140526
  Transmission Date: 20141212
  Serious: Yes (Other)
  Sender: FDA-Public Use
  Company Number: PHHY2014DE061507

PATIENT
  Age: 31 Year
  Sex: Male

DRUGS (7)
  1. FLUNITRAZEPAM [Suspect]
     Route: 048
  2. METHADONE [Suspect]
  3. CANNABIS [Concomitant]
  4. COCAINE [Concomitant]
  5. HEROIN [Concomitant]
  6. INTERFERON [Concomitant]
     Indication: CHRONIC HEPATITIS C
  7. RIBAVIRIN [Concomitant]
     Indication: CHRONIC HEPATITIS C

REACTIONS (1)
  - Suicide attempt [Unknown]
